FAERS Safety Report 6864519-6 (Version None)
Quarter: 2010Q3

REPORT INFORMATION
  Report Type: 
  Country: None (occurrence: None)
  Receive Date: 20100721
  Receipt Date: 20090507
  Transmission Date: 20110219
  Serious: No
  Sender: FDA-Public Use
  Company Number: US-PFIZER INC-2008028658

PATIENT
  Sex: Female
  Weight: 53 kg

DRUGS (7)
  1. CHANTIX [Suspect]
     Indication: SMOKING CESSATION THERAPY
     Dosage: 1 MG, 2X/DAY
     Route: 048
     Dates: start: 20070701, end: 20090401
  2. NEURONTIN [Concomitant]
  3. HYDROCODONE [Concomitant]
  4. OMEPRAZOLE [Concomitant]
     Indication: GASTRIC DISORDER
  5. WELLBUTRIN SR [Concomitant]
     Dosage: UNK
  6. BUPROPION [Concomitant]
     Dosage: UNK
  7. QUININE [Concomitant]
     Dosage: UNK

REACTIONS (7)
  - ABDOMINAL PAIN UPPER [None]
  - ANXIETY [None]
  - CONSTIPATION [None]
  - DEPRESSED MOOD [None]
  - EATING DISORDER [None]
  - PANCREATIC DISORDER [None]
  - WEIGHT INCREASED [None]
